FAERS Safety Report 8605823-0 (Version None)
Quarter: 2012Q3

REPORT INFORMATION
  Report Type: 
  Country: None (occurrence: None)
  Receive Date: 20120820
  Receipt Date: 20120815
  Transmission Date: 20120928
  Serious: Yes (Other)
  Sender: FDA-Public Use
  Company Number: US-GLAXOSMITHKLINE-A0989700A

PATIENT
  Age: 41 Year
  Sex: Female

DRUGS (7)
  1. BUSPAR [Concomitant]
  2. DOXYCYCLINE HCL [Concomitant]
  3. VENTOLIN [Suspect]
     Indication: BRONCHITIS
     Dosage: 2PUFF FOUR TIMES PER DAY
     Route: 055
     Dates: start: 20120814
  4. SEROQUEL [Concomitant]
  5. AMITRIPTYLINE HCL [Concomitant]
  6. ASPIRIN [Concomitant]
  7. BENZONATATE [Concomitant]

REACTIONS (2)
  - AGEUSIA [None]
  - ANOSMIA [None]
